FAERS Safety Report 9413079 (Version 1)
Quarter: 2013Q3

REPORT INFORMATION
  Report Type: Spontaneous
  Country: CN (occurrence: CN)
  Receive Date: 20130722
  Receipt Date: 20130722
  Transmission Date: 20140515
  Serious: Yes (Other)
  Sender: FDA-Public Use
  Company Number: CN-GLAXOSMITHKLINE-B0909438A

PATIENT
  Sex: Male

DRUGS (2)
  1. FLIXONASE [Suspect]
     Indication: RHINITIS ALLERGIC
     Route: 065
     Dates: start: 201009, end: 201307
  2. AZELASTINE HYDROCHLORIDE [Concomitant]
     Indication: HOUSE DUST ALLERGY
     Route: 065

REACTIONS (3)
  - Borderline glaucoma [Not Recovered/Not Resolved]
  - Intraocular pressure increased [Not Recovered/Not Resolved]
  - Eye pain [Not Recovered/Not Resolved]
